FAERS Safety Report 6027124-X (Version None)
Quarter: 2009Q1

REPORT INFORMATION
  Report Type: 
  Country: None (occurrence: None)
  Receive Date: 20090102
  Receipt Date: 20090102
  Transmission Date: 20090719
  Serious: Yes (Other)
  Sender: FDA-Public Use
  Company Number: None

PATIENT
  Sex: Female
  Weight: 58.0604 kg

DRUGS (1)
  1. SULFMETH/TRIMETH DS TAB 800-160 MG AMNEAL [Suspect]
     Indication: SINUSITIS
     Dosage: 1 TABLET EVERY 12 HOURS PO
     Route: 048
     Dates: start: 20081222, end: 20081228

REACTIONS (4)
  - HEADACHE [None]
  - MYALGIA [None]
  - PAIN [None]
  - RASH [None]
